FAERS Safety Report 5908557-6 (Version None)
Quarter: 2008Q3

REPORT INFORMATION
  Report Type: 
  Country: None (occurrence: None)
  Receive Date: 20080929
  Receipt Date: 20080923
  Transmission Date: 20090109
  Serious: Yes (Other)
  Sender: FDA-Public Use
  Company Number: 2008SP017722

PATIENT
  Age: 51 Year
  Sex: Male

DRUGS (4)
  1. PEG-INTRON [Suspect]
     Indication: HEPATITIS C
     Dosage: SC
     Route: 058
     Dates: start: 20080713, end: 20080902
  2. RIBAVIRIN [Suspect]
     Indication: HEPATITIS C
     Dosage: PO
     Route: 048
     Dates: start: 20080713, end: 20080902
  3. PAXIL [Concomitant]
  4. FLUOCINONIDE [Concomitant]

REACTIONS (24)
  - ANAEMIA [None]
  - ANGER [None]
  - ANHEDONIA [None]
  - ARTHRALGIA [None]
  - BACK PAIN [None]
  - DEHYDRATION [None]
  - DEPRESSED MOOD [None]
  - DRY SKIN [None]
  - EYE PAIN [None]
  - FEELING ABNORMAL [None]
  - HEADACHE [None]
  - HYPERAESTHESIA [None]
  - INSOMNIA [None]
  - MEMORY IMPAIRMENT [None]
  - ONYCHALGIA [None]
  - ONYCHOCLASIS [None]
  - PAIN [None]
  - PHOTOPHOBIA [None]
  - PLATELET COUNT DECREASED [None]
  - PRURITUS [None]
  - PSORIASIS [None]
  - RASH GENERALISED [None]
  - SKIN FISSURES [None]
  - SLEEP DISORDER [None]
